FAERS Safety Report 17640765 (Version 3)
Quarter: 2020Q2

REPORT INFORMATION
  Report Type: Spontaneous
  Country: RO (occurrence: RO)
  Receive Date: 20200408
  Receipt Date: 20200611
  Transmission Date: 20200713
  Serious: Yes (Hospitalization)
  Sender: FDA-Public Use
  Company Number: RO-CELLTRION INC.-2020RO021244

PATIENT

DRUGS (7)
  1. DICLOFENAC [Suspect]
     Active Substance: DICLOFENAC
     Indication: ANKYLOSING SPONDYLITIS
     Dosage: UNK
     Route: 065
  2. INDOMETHACIN [INDOMETACIN] [Suspect]
     Active Substance: INDOMETHACIN
     Dosage: 150 MG, PER DAY
  3. INFLIXIMAB (UNKNOWN) [Suspect]
     Active Substance: INFLIXIMAB
     Indication: ANKYLOSING SPONDYLITIS
     Dosage: 5 MG/KG AT 0, 2, AND 6 WEEKS AND THEN EVERY 6-8 WEEKS
     Route: 042
     Dates: start: 201409
  4. SULFASALAZINE. [Concomitant]
     Active Substance: SULFASALAZINE
     Indication: ANKYLOSING SPONDYLITIS
     Dosage: UNK
     Route: 065
     Dates: start: 201409
  5. SULFASALAZINE. [Suspect]
     Active Substance: SULFASALAZINE
     Dosage: 500 MG, 5X/DAY
  6. ADALIMUMAB [Concomitant]
     Active Substance: ADALIMUMAB
     Dosage: 40 MG, EVERY TWO WEEKS
     Route: 058
  7. INFLIXIMAB (UNKNOWN) [Suspect]
     Active Substance: INFLIXIMAB
     Dosage: 5 MG/KG, AT 0, 2 AND 6 WEEKS, AND THEN EVERY 6-8 WEEKS
     Route: 042

REACTIONS (7)
  - Inflammatory marker increased [Unknown]
  - Ankylosing spondylitis [Unknown]
  - Drug ineffective [Unknown]
  - Joint swelling [Unknown]
  - Off label use [Unknown]
  - Therapy non-responder [Unknown]
  - Drug specific antibody present [Unknown]
